FAERS Safety Report 7954998-5 (Version None)
Quarter: 2011Q4

REPORT INFORMATION
  Report Type: 
  Country: None (occurrence: None)
  Receive Date: 20111202
  Receipt Date: 20111124
  Transmission Date: 20120403
  Serious: Yes (Other)
  Sender: FDA-Public Use
  Company Number: PHHY2011KR105043

PATIENT
  Age: 58 Year
  Sex: Female

DRUGS (5)
  1. FELODIPINE [Concomitant]
     Dosage: 5 MG, QD
  2. EPROSARTAN [Concomitant]
     Dosage: 600 MG, QD
  3. ATENOLOL [Concomitant]
     Indication: IMMUNOSUPPRESSION
     Dosage: 100 MG, QD
  4. PREDNISOLONE [Suspect]
     Dosage: 05 MG, QD
  5. CYCLOSPORINE [Concomitant]
     Indication: IMMUNOSUPPRESSION
     Dosage: 100 MG, QD

REACTIONS (1)
  - CHORIORETINOPATHY [None]
